FAERS Safety Report 5960399-1 (Version None)
Quarter: 2008Q4

REPORT INFORMATION
  Report Type: 
  Country: None (occurrence: None)
  Receive Date: 20081120
  Receipt Date: 20081112
  Transmission Date: 20090506
  Serious: Yes (Hospitalization, Disabling, Other)
  Sender: FDA-Public Use
  Company Number: GR-ABBOTT-08P-066-0434099-00

PATIENT
  Age: 72 Year
  Sex: Female
  Weight: 80 kg

DRUGS (16)
  1. HUMIRA [Suspect]
     Indication: RHEUMATOID ARTHRITIS
     Route: 058
     Dates: start: 20060922, end: 20071002
  2. HUMIRA [Suspect]
     Route: 058
     Dates: start: 20071129
  3. HUMIRA [Suspect]
     Route: 058
     Dates: start: 20061101
  4. METHYLPREDNISOLONE 16MG TAB [Suspect]
     Indication: RHEUMATOID ARTHRITIS
     Route: 048
     Dates: start: 20070725
  5. METHYLPREDNISOLONE 16MG TAB [Suspect]
     Indication: CHRONIC OBSTRUCTIVE PULMONARY DISEASE
  6. BUDESONIDE W/FORMOTEROL FUMARATE [Suspect]
     Indication: BRONCHITIS
     Route: 055
  7. LEFLUNOMIDE [Concomitant]
     Indication: RHEUMATOID ARTHRITIS
     Route: 048
     Dates: start: 20040901
  8. CALCIUM CARBONATE [Concomitant]
     Indication: OSTEOPOROSIS
     Route: 048
     Dates: start: 20040101
  9. RECLAST [Concomitant]
     Indication: OSTEOPOROSIS
     Route: 042
     Dates: start: 20070731, end: 20070731
  10. MONTELUKAST SODIUM [Concomitant]
     Indication: BRONCHITIS
     Route: 048
  11. CITALOPRAM HYDROBROMIDE [Concomitant]
     Indication: DEPRESSION
     Route: 048
  12. AMITRIPTYLINE HCL [Concomitant]
     Indication: DEPRESSION
     Route: 048
  13. ONE ALPHA [Concomitant]
     Indication: OSTEOPOROSIS
     Route: 048
     Dates: start: 20040101
  14. METHOTREXATE [Concomitant]
     Indication: RHEUMATOID ARTHRITIS
     Route: 048
     Dates: start: 20080416
  15. FOLIC ACID [Concomitant]
     Indication: RHEUMATOID ARTHRITIS
     Route: 048
     Dates: start: 20080416
  16. CEFUROXIME AXETIL [Concomitant]
     Indication: URINARY TRACT INFECTION
     Route: 048
     Dates: start: 20080416, end: 20080726

REACTIONS (2)
  - FEMUR FRACTURE [None]
  - MEDICAL DEVICE REMOVAL [None]
